FAERS Safety Report 6371566-X (Version None)
Quarter: 2009Q3

REPORT INFORMATION
  Report Type: 
  Country: None (occurrence: None)
  Receive Date: 20090923
  Receipt Date: 20070921
  Transmission Date: 20100115
  Serious: Yes (Hospitalization, Other)
  Sender: FDA-Public Use
  Company Number: US-ASTRAZENECA-2007UW16819

PATIENT
  Age: 35 Year
  Sex: Female
  Weight: 164.7 kg

DRUGS (23)
  1. SEROQUEL [Suspect]
     Indication: DEPRESSION
     Route: 048
     Dates: start: 19980101
  2. SEROQUEL [Suspect]
     Indication: EMOTIONAL DISORDER
     Route: 048
     Dates: start: 19980101
  3. SEROQUEL [Suspect]
     Indication: SLEEP DISORDER
     Route: 048
     Dates: start: 19980101
  4. SEROQUEL [Suspect]
     Dosage: 25 MG Q DAY, 45 MG QHS, 50 MG DAILY, 100 MG , 600 MG QHS, 800 MG QHS
     Route: 048
     Dates: start: 19990702
  5. SEROQUEL [Suspect]
     Dosage: 25 MG Q DAY, 45 MG QHS, 50 MG DAILY, 100 MG , 600 MG QHS, 800 MG QHS
     Route: 048
     Dates: start: 19990702
  6. SEROQUEL [Suspect]
     Dosage: 25 MG Q DAY, 45 MG QHS, 50 MG DAILY, 100 MG , 600 MG QHS, 800 MG QHS
     Route: 048
     Dates: start: 19990702
  7. CELEXA [Concomitant]
     Route: 048
  8. PROZAC [Concomitant]
     Route: 048
  9. ADIPUX [Concomitant]
     Indication: WEIGHT CONTROL
     Route: 048
     Dates: start: 20061001
  10. EFFEXOR XR [Concomitant]
     Indication: ANTIDEPRESSANT THERAPY
     Dosage: 150 MG DAILY, 75 MG BID
     Route: 048
     Dates: start: 19990407
  11. FLEXERIL [Concomitant]
     Dates: start: 19990324
  12. MEDROL [Concomitant]
     Dates: start: 19990324
  13. PERIACTIN [Concomitant]
     Dosage: 4 MG
     Dates: start: 19990606
  14. BUSPAR [Concomitant]
     Route: 048
     Dates: start: 20020718
  15. GLUCOPHAGE [Concomitant]
     Dates: start: 20020712
  16. AMARYL [Concomitant]
     Dosage: 2 MG BID, 4 MG TWICE A DAY
     Route: 048
     Dates: start: 20020712
  17. STEROID [Concomitant]
     Indication: BACK DISORDER
     Dates: start: 19990606
  18. DAYPRO [Concomitant]
     Indication: OSTEOARTHRITIS
     Dates: start: 20040507
  19. LASIX [Concomitant]
     Dates: start: 20040425
  20. ALTACE [Concomitant]
     Dosage: 2.5 Q DAY
     Dates: start: 20040425
  21. AVANDIA [Concomitant]
     Dates: start: 20030708
  22. LEVAQUIN [Concomitant]
     Route: 048
     Dates: start: 20010613
  23. PHENAZOPYRIDINE HCL TAB [Concomitant]
     Route: 048
     Dates: start: 20010613

REACTIONS (6)
  - ASTHMA [None]
  - BLOOD CHOLESTEROL INCREASED [None]
  - CARDIAC FAILURE CONGESTIVE [None]
  - DIABETES MELLITUS [None]
  - DIABETES MELLITUS INADEQUATE CONTROL [None]
  - TYPE 2 DIABETES MELLITUS [None]
